FAERS Safety Report 5193787-4 (Version None)
Quarter: 2006Q4

REPORT INFORMATION
  Report Type: 
  Country: None (occurrence: None)
  Receive Date: 20061221
  Receipt Date: 20061212
  Transmission Date: 20070319
  Serious: Yes (Other)
  Sender: FDA-Public Use
  Company Number: 2006152013

PATIENT
  Age: 8 Year
  Sex: Female
  Weight: 24.9478 kg

DRUGS (1)
  1. CHILDREN'S PEDIACARE LONG ACTING COUGH PLUS COLD (PSEUDOEPHEDRINE, DEX [Suspect]
     Dosage: 2 TEASPOONS ONCE, ORAL
     Route: 048
     Dates: start: 20061212, end: 20061212

REACTIONS (1)
  - RASH [None]
